FAERS Safety Report 10631609 (Version 1)
Quarter: 2014Q4

REPORT INFORMATION
  Report Type: Spontaneous
  Country: None (occurrence: None)
  Receive Date: 20141203
  Receipt Date: 20141203
  Transmission Date: 20150529
  Serious: Yes (Hospitalization)
  Sender: FDA-Public Use
  Company Number: BE-DEXPHARM-20140964

PATIENT
  Age: 65 Year
  Sex: Male

DRUGS (5)
  1. SOTALOL. [Suspect]
     Active Substance: SOTALOL
  2. ESCITALOPRAM [Suspect]
     Active Substance: ESCITALOPRAM OXALATE
     Indication: DEPRESSION
  3. OMEPRAZOLE. [Suspect]
     Active Substance: OMEPRAZOLE
  4. TACROLIMUS. [Suspect]
     Active Substance: TACROLIMUS
  5. SOTALOL. [Suspect]
     Active Substance: SOTALOL
     Indication: ATRIAL FIBRILLATION

REACTIONS (16)
  - Drug interaction [None]
  - Drug intolerance [None]
  - Haemoglobin decreased [None]
  - Depression [None]
  - White blood cell count increased [None]
  - Protein total decreased [None]
  - Platelet count increased [None]
  - Blood chloride decreased [None]
  - Red blood cell count decreased [None]
  - Long QT syndrome [None]
  - Loss of consciousness [None]
  - Vomiting [None]
  - Hypokalaemia [None]
  - Haematocrit decreased [None]
  - Blood lactate dehydrogenase increased [None]
  - Torsade de pointes [None]
